FAERS Safety Report 5913776-9 (Version None)
Quarter: 2008Q4

REPORT INFORMATION
  Report Type: 
  Country: None (occurrence: None)
  Receive Date: 20081007
  Receipt Date: 20080925
  Transmission Date: 20090506
  Serious: Yes (Hospitalization)
  Sender: FDA-Public Use
  Company Number: 2008-184430-NL

PATIENT
  Age: 37 Year
  Sex: Female

DRUGS (1)
  1. NUVARING [Suspect]
     Dosage: DF
     Dates: start: 20080101

REACTIONS (3)
  - VAGINAL HAEMORRHAGE [None]
  - VAGINAL LESION [None]
  - WOUND HAEMORRHAGE [None]
